FAERS Safety Report 16216258 (Version 2)
Quarter: 2019Q2

REPORT INFORMATION
  Report Type: Spontaneous
  Country: US (occurrence: US)
  Receive Date: 20190419
  Receipt Date: 20190422
  Transmission Date: 20190711
  Serious: No
  Sender: FDA-Public Use
  Company Number: US-GLAXOSMITHKLINE-US2019069307

PATIENT
  Sex: Male

DRUGS (1)
  1. ADVAIR DISKUS [Suspect]
     Active Substance: FLUTICASONE PROPIONATE\SALMETEROL XINAFOATE
     Indication: WHEEZING
     Dosage: UNK UNK, PRN
     Route: 055

REACTIONS (5)
  - Device used for unapproved schedule [Unknown]
  - Drug effective for unapproved indication [Unknown]
  - Device use issue [Unknown]
  - Off label use [Unknown]
  - Intentional underdose [Unknown]
